FAERS Safety Report 8542329-1 (Version None)
Quarter: 2012Q3

REPORT INFORMATION
  Report Type: 
  Country: None (occurrence: None)
  Receive Date: 20120726
  Receipt Date: 20120312
  Transmission Date: 20120928
  Serious: No
  Sender: FDA-Public Use
  Company Number: US-ASTRAZENECA-2011SE49570

PATIENT
  Age: 58 Year
  Sex: Female
  Weight: 65.8 kg

DRUGS (2)
  1. SEROQUEL XR [Suspect]
     Route: 048
     Dates: start: 20100101
  2. SEROQUEL XR [Suspect]
     Indication: DEPRESSION
     Route: 048

REACTIONS (3)
  - INSOMNIA [None]
  - PANIC REACTION [None]
  - FEELING ABNORMAL [None]
